FAERS Safety Report 5499047-6 (Version None)
Quarter: 2007Q4

REPORT INFORMATION
  Report Type: 
  Country: None (occurrence: None)
  Receive Date: 20071026
  Receipt Date: 20070920
  Transmission Date: 20080405
  Serious: Yes (Other)
  Sender: FDA-Public Use
  Company Number: A0652428A

PATIENT
  Age: 55 Year
  Sex: Female

DRUGS (3)
  1. ADVAIR DISKUS 100/50 [Suspect]
     Indication: CHRONIC OBSTRUCTIVE PULMONARY DISEASE
     Dosage: 1PUFF TWICE PER DAY
     Route: 055
     Dates: start: 20051101
  2. ALBUTEROL [Concomitant]
  3. COMBIVENT [Concomitant]

REACTIONS (3)
  - BORDERLINE GLAUCOMA [None]
  - CATARACT [None]
  - INTRAOCULAR PRESSURE INCREASED [None]
